FAERS Safety Report 20781436 (Version 4)
Quarter: 2022Q4

REPORT INFORMATION
  Report Type: Spontaneous
  Country: US (occurrence: US)
  Receive Date: 20220504
  Receipt Date: 20221226
  Transmission Date: 20230112
  Serious: No
  Sender: FDA-Public Use
  Company Number: US-SANOFI-01083755

PATIENT
  Age: 41 Year
  Sex: Male
  Weight: 104.3 kg

DRUGS (5)
  1. DUPIXENT [Suspect]
     Active Substance: DUPILUMAB
     Indication: Dermatitis atopic
     Dosage: 600 MG, 1X
     Route: 058
  2. DUPIXENT [Suspect]
     Active Substance: DUPILUMAB
     Indication: Eczema
     Dosage: 300 MG, QOW
     Route: 058
     Dates: end: 20220215
  3. TACROLIMUS [Concomitant]
     Active Substance: TACROLIMUS
     Indication: Eczema
     Dosage: THIN LAYER 1-2 DAY
     Route: 061
  4. HYDROCORTISONE [Concomitant]
     Active Substance: HYDROCORTISONE
     Indication: Eczema
     Dosage: THIN LAYER 1-2 DAY
     Route: 061
     Dates: start: 20211101
  5. CLOBETASOL [Concomitant]
     Active Substance: CLOBETASOL
     Indication: Eczema
     Dosage: 1-2 DAY
     Route: 061
     Dates: start: 20211101

REACTIONS (2)
  - Alopecia [Not Recovered/Not Resolved]
  - Alopecia areata [Unknown]

NARRATIVE: CASE EVENT DATE: 20220101
